FAERS Safety Report 6710283-0 (Version None)
Quarter: 2010Q2

REPORT INFORMATION
  Report Type: 
  Country: None (occurrence: None)
  Receive Date: 20100430
  Receipt Date: 20100416
  Transmission Date: 20101027
  Serious: Yes (Other)
  Sender: FDA-Public Use
  Company Number: 010547

PATIENT
  Age: 19 Year
  Sex: Female

DRUGS (1)
  1. VIMPAT [Suspect]
     Indication: PARTIAL SEIZURES
     Dosage: MAXIMUM DOSE: 400 MG; INCREASE: 50 MG/WEEK
     Dates: start: 20090121, end: 20091023

REACTIONS (3)
  - ALOPECIA [None]
  - CONDITION AGGRAVATED [None]
  - CONVULSION [None]
